FAERS Safety Report 7499230-4 (Version None)
Quarter: 2011Q2

REPORT INFORMATION
  Report Type: 
  Country: None (occurrence: None)
  Receive Date: 20110524
  Receipt Date: 20110516
  Transmission Date: 20111010
  Serious: Yes (Death)
  Sender: FDA-Public Use
  Company Number: FR-JNJFOC-20110407252

PATIENT
  Sex: Female

DRUGS (10)
  1. NIZORAL [Suspect]
     Route: 048
     Dates: start: 20110101, end: 20110201
  2. NIZORAL [Suspect]
     Indication: CUSHING'S SYNDROME
     Route: 048
     Dates: start: 20101101, end: 20110101
  3. SPIRONOLACTONE [Concomitant]
     Indication: PRODUCT USED FOR UNKNOWN INDICATION
     Route: 065
  4. NIZORAL [Suspect]
     Route: 048
     Dates: start: 20110201, end: 20110401
  5. LYSODREN [Concomitant]
     Indication: CUSHING'S SYNDROME
     Route: 065
  6. VALACICLOVIR [Concomitant]
     Indication: PRODUCT USED FOR UNKNOWN INDICATION
     Route: 065
  7. RAMIPRIL [Concomitant]
     Indication: PRODUCT USED FOR UNKNOWN INDICATION
     Route: 065
  8. TAXOL [Concomitant]
     Indication: PRODUCT USED FOR UNKNOWN INDICATION
     Route: 065
  9. INSULIN [Concomitant]
     Indication: DIABETES MELLITUS
  10. NEXIUM [Concomitant]
     Indication: PRODUCT USED FOR UNKNOWN INDICATION
     Route: 065

REACTIONS (4)
  - OFF LABEL USE [None]
  - LUNG NEOPLASM MALIGNANT [None]
  - OVERDOSE [None]
  - THERAPEUTIC RESPONSE DECREASED [None]
